FAERS Safety Report 7718963-5 (Version None)
Quarter: 2011Q3

REPORT INFORMATION
  Report Type: 
  Country: None (occurrence: None)
  Receive Date: 20110830
  Receipt Date: 20110427
  Transmission Date: 20111222
  Serious: Yes (Hospitalization)
  Sender: FDA-Public Use
  Company Number: US-GLAXOSMITHKLINE-A0925634A

PATIENT
  Age: 75 Year
  Sex: Male

DRUGS (1)
  1. AVANDIA [Suspect]
     Indication: DIABETES MELLITUS
     Route: 048
     Dates: start: 20050208, end: 20061201

REACTIONS (8)
  - HEART RATE IRREGULAR [None]
  - CHEST DISCOMFORT [None]
  - FATIGUE [None]
  - CARDIAC DISORDER [None]
  - PALPITATIONS [None]
  - HEART RATE DECREASED [None]
  - DYSPNOEA [None]
  - OEDEMA PERIPHERAL [None]
